FAERS Safety Report 25597150 (Version 1)
Quarter: 2025Q3

REPORT INFORMATION
  Report Type: Spontaneous
  Country: US (occurrence: US)
  Receive Date: 20250723
  Receipt Date: 20250723
  Transmission Date: 20251021
  Serious: No
  Sender: PROGENICS PHARMACEUTICALS
  Company Number: US-LANTHEUS MEDICAL IMAGING-LMI-2024-01511

PATIENT
  Sex: Male

DRUGS (1)
  1. PYLARIFY [Suspect]
     Active Substance: PIFLUFOLASTAT F-18
     Indication: Ultrasound scan

REACTIONS (2)
  - Wrong product administered [Unknown]
  - Product dispensing error [Unknown]

NARRATIVE: CASE EVENT DATE: 20241009
